FAERS Safety Report 21141654 (Version 1)
Quarter: 2022Q3

REPORT INFORMATION
  Report Type: Spontaneous
  Country: US (occurrence: US)
  Receive Date: 20220728
  Receipt Date: 20220728
  Transmission Date: 20221027
  Serious: No
  Sender: FDA-Public Use
  Company Number: US-BRISTOL-MYERS SQUIBB COMPANY-2022-081124

PATIENT
  Age: 83 Year
  Sex: Female
  Weight: 53.98 kg

DRUGS (1)
  1. POMALYST [Suspect]
     Active Substance: POMALIDOMIDE
     Indication: Plasma cell myeloma
     Dosage: EVERYOTHER DAY
     Route: 048
     Dates: start: 20200701

REACTIONS (2)
  - Confusional state [Unknown]
  - Nausea [Unknown]
